FAERS Safety Report 6120746-7 (Version None)
Quarter: 2009Q1

REPORT INFORMATION
  Report Type: 
  Country: None (occurrence: None)
  Receive Date: 20090317
  Receipt Date: 20090311
  Transmission Date: 20090719
  Serious: Yes (Other)
  Sender: FDA-Public Use
  Company Number: US-ELI_LILLY_AND_COMPANY-US200903002944

PATIENT
  Sex: Male

DRUGS (18)
  1. BYETTA [Suspect]
     Dosage: 5 UG, 2/D
     Route: 058
     Dates: start: 20060101, end: 20060101
  2. BYETTA [Suspect]
     Dosage: 10 UG, 2/D
     Route: 058
     Dates: start: 20070101, end: 20070101
  3. BYETTA [Suspect]
     Dosage: 10 UG, 2/D
     Route: 058
     Dates: start: 20080214
  4. GLIPIZIDE [Concomitant]
     Indication: TYPE 2 DIABETES MELLITUS
     Dosage: UNK, UNKNOWN
  5. SPIRONOLACTONE [Concomitant]
     Indication: HYPERTENSION
     Dosage: UNK, UNKNOWN
  6. LEVOTHYROXINE SODIUM [Concomitant]
     Indication: HYPOTHYROIDISM
     Dosage: UNK, UNKNOWN
  7. PLAVIX [Concomitant]
     Indication: MYOCARDIAL INFARCTION
     Dosage: UNK, UNKNOWN
  8. RAMIPRIL [Concomitant]
     Indication: HYPERTENSION
     Dosage: UNK, UNKNOWN
  9. METOPROLOL TARTRATE [Concomitant]
     Indication: MYOCARDIAL INFARCTION
     Dosage: UNK, UNKNOWN
  10. TRICOR [Concomitant]
     Indication: BLOOD TRIGLYCERIDES INCREASED
     Dosage: UNK, UNKNOWN
  11. PRAVASTATIN [Concomitant]
     Indication: BLOOD TRIGLYCERIDES INCREASED
     Dosage: UNK, UNKNOWN
  12. ALLOPURINOL [Concomitant]
     Indication: NEPHROLITHIASIS
     Dosage: UNK, UNKNOWN
  13. METFORMIN HCL [Concomitant]
     Indication: TYPE 2 DIABETES MELLITUS
     Dosage: 1000 MG, UNKNOWN
     Dates: start: 20080101, end: 20080101
  14. METFORMIN HCL [Concomitant]
     Dosage: 500 MG, UNKNOWN
     Dates: start: 20080101, end: 20080101
  15. LANTUS [Concomitant]
     Indication: TYPE 2 DIABETES MELLITUS
     Dosage: UNK, UNKNOWN
     Dates: start: 20080101, end: 20080101
  16. JANUVIA [Concomitant]
     Indication: TYPE 2 DIABETES MELLITUS
     Dosage: UNK, UNKNOWN
     Dates: start: 20080101, end: 20080101
  17. LEVEMIR [Concomitant]
     Indication: TYPE 2 DIABETES MELLITUS
     Dosage: UNK, UNKNOWN
     Dates: start: 20080101, end: 20080101
  18. HUMALOG [Concomitant]
     Indication: TYPE 2 DIABETES MELLITUS
     Dosage: UNK, UNKNOWN
     Dates: start: 20080101, end: 20080101

REACTIONS (13)
  - ACNE [None]
  - BLOOD GLUCOSE INCREASED [None]
  - CATARACT [None]
  - DIARRHOEA [None]
  - FLATULENCE [None]
  - MACULOPATHY [None]
  - MEMORY IMPAIRMENT [None]
  - MYODESOPSIA [None]
  - PRODUCT QUALITY ISSUE [None]
  - RETINAL DETACHMENT [None]
  - VISION BLURRED [None]
  - VISUAL ACUITY REDUCED [None]
  - VITREOUS DETACHMENT [None]
